FAERS Safety Report 10750075 (Version 1)
Quarter: 2015Q1

REPORT INFORMATION
  Report Type: Spontaneous
  Country: US (occurrence: US)
  Receive Date: 20150129
  Receipt Date: 20150129
  Transmission Date: 20150721
  Serious: No
  Sender: FDA-Public Use
  Company Number: US-BIOGENIDEC-2015BI010348

PATIENT
  Age: 67 Year
  Sex: Female

DRUGS (22)
  1. LEVOTHYROXINE SODIUM. [Concomitant]
     Active Substance: LEVOTHYROXINE SODIUM
  2. LIPITOR [Concomitant]
     Active Substance: ATORVASTATIN CALCIUM
  3. SENNA [Concomitant]
     Active Substance: SENNA LEAF\SENNOSIDES\SENNOSIDES A AND B
  4. ALBUTEROL SULFATE. [Concomitant]
     Active Substance: ALBUTEROL SULFATE
  5. HYDROCORTISONE. [Concomitant]
     Active Substance: HYDROCORTISONE
  6. NYSTATIN. [Concomitant]
     Active Substance: NYSTATIN
  7. VITAMIN D [Concomitant]
     Active Substance: CHOLECALCIFEROL
  8. TECFIDERA [Suspect]
     Active Substance: DIMETHYL FUMARATE
     Indication: MULTIPLE SCLEROSIS
     Route: 048
     Dates: start: 201412
  9. CLONAZEPAM. [Concomitant]
     Active Substance: CLONAZEPAM
  10. TOPROL XL [Concomitant]
     Active Substance: METOPROLOL SUCCINATE
  11. REQUIP XL [Concomitant]
     Active Substance: ROPINIROLE HYDROCHLORIDE
  12. BACLOFEN. [Concomitant]
     Active Substance: BACLOFEN
  13. ADVAIR DISKUS [Concomitant]
     Active Substance: FLUTICASONE PROPIONATE\SALMETEROL XINAFOATE
  14. HYDROXYZINE HCL [Concomitant]
     Active Substance: HYDROXYZINE HYDROCHLORIDE
  15. LACTULOSE. [Concomitant]
     Active Substance: LACTULOSE
  16. HUMULIN N [Concomitant]
     Active Substance: INSULIN HUMAN
  17. CALMOSEPTINE [Concomitant]
     Active Substance: MENTHOL\ZINC OXIDE
  18. GLUCOPHAGE [Concomitant]
     Active Substance: METFORMIN HYDROCHLORIDE
  19. TRIAZOLAM. [Concomitant]
     Active Substance: TRIAZOLAM
  20. GABAPENTIN. [Concomitant]
     Active Substance: GABAPENTIN
  21. CALCIUM [Concomitant]
     Active Substance: CALCIUM
  22. CLOBETASOL PROPIONATE. [Concomitant]
     Active Substance: CLOBETASOL PROPIONATE

REACTIONS (1)
  - Constipation [Recovered/Resolved]

NARRATIVE: CASE EVENT DATE: 201412
